FAERS Safety Report 6573095-7 (Version None)
Quarter: 2010Q1

REPORT INFORMATION
  Report Type: 
  Country: None (occurrence: None)
  Receive Date: 20100208
  Receipt Date: 20100125
  Transmission Date: 20100710
  Serious: Yes (Death, Hospitalization)
  Sender: FDA-Public Use
  Company Number: US-JNJFOC-20090502148

PATIENT
  Sex: Female
  Weight: 15 kg

DRUGS (3)
  1. EXTRA STRENGTH TYLENOL [Suspect]
     Indication: RESPIRATORY DISORDER
     Dosage: 8.5 GRAMS OVER 5 DAYS
     Route: 048
  2. EXTRA STRENGTH TYLENOL [Suspect]
     Indication: PYREXIA
     Dosage: 8.5 GRAMS OVER 5 DAYS
     Route: 048
  3. PEPTO-BISMOL [Concomitant]

REACTIONS (6)
  - ACUTE HEPATIC FAILURE [None]
  - COAGULOPATHY [None]
  - ENCEPHALOPATHY [None]
  - OLIGURIA [None]
  - OVERDOSE [None]
  - WRONG DRUG ADMINISTERED [None]
